FAERS Safety Report 4741461-8 (Version None)
Quarter: 2005Q3

REPORT INFORMATION
  Report Type: 
  Country: None (occurrence: None)
  Receive Date: 20050808
  Receipt Date: 20050727
  Transmission Date: 20060218
  Serious: Yes (Hospitalization)
  Sender: FDA-Public Use
  Company Number: RENA-11459

PATIENT
  Age: 26 Year
  Sex: Female
  Weight: 39 kg

DRUGS (11)
  1. RENAGEL [Suspect]
     Indication: HYPERPHOSPHATAEMIA
  2. LEVOTHYROX [Suspect]
     Dosage: 1 QD PO
     Route: 048
  3. PEGASYS [Suspect]
     Dates: start: 20050104, end: 20050325
  4. COPEGUS [Suspect]
     Dates: start: 20050104, end: 20050325
  5. OMEPRAZOLE [Suspect]
  6. HYDROCORTISONE [Suspect]
     Dosage: 30 MG QD PO
     Route: 048
  7. KAYEXALATE [Concomitant]
  8. CLARYTINE [Concomitant]
  9. DOLIPRANE [Concomitant]
  10. BICARBONATE NA [Concomitant]
  11. ARANESP [Concomitant]

REACTIONS (14)
  - BLOOD CULTURE POSITIVE [None]
  - CARDIAC MURMUR [None]
  - DYSPNOEA [None]
  - EAR INFECTION [None]
  - ENDOCARDITIS [None]
  - EOSINOPHILIA [None]
  - EPISTAXIS [None]
  - FUNGAL INFECTION [None]
  - ICHTHYOSIS [None]
  - LYMPHADENOPATHY [None]
  - LYMPHOPENIA [None]
  - MYOCARDIAC ABSCESS [None]
  - SINUS TACHYCARDIA [None]
  - STAPHYLOCOCCAL INFECTION [None]
